FAERS Safety Report 6616963-X (Version None)
Quarter: 2010Q1

REPORT INFORMATION
  Report Type: 
  Country: None (occurrence: None)
  Receive Date: 20100301
  Receipt Date: 20100212
  Transmission Date: 20100710
  Serious: Yes (Death)
  Sender: FDA-Public Use
  Company Number: 1000012081

PATIENT
  Age: 51 Year
  Sex: Female

DRUGS (11)
  1. ESCITALOPRAM [Suspect]
  2. DOXEPIN HCL [Suspect]
  3. ETHANOL [Suspect]
  4. CLONAZEPAM [Suspect]
  5. CLONIDINE [Suspect]
  6. DRUG, UKNOWN [Suspect]
  7. DIPHENHYDRAMINE HYDROCHLORIDE [Suspect]
  8. SILDENAFIL CITRATE [Suspect]
  9. SERTRALINE HCL [Suspect]
  10. DULOXETINE HYDROCHLORIDE [Suspect]
  11. OXYBUTYNIN [Suspect]

REACTIONS (1)
  - CARDIO-RESPIRATORY ARREST [None]
